FAERS Safety Report 16496216 (Version 1)
Quarter: 2019Q2

REPORT INFORMATION
  Report Type: Spontaneous
  Country: US (occurrence: US)
  Receive Date: 20190628
  Receipt Date: 20190628
  Transmission Date: 20190711
  Serious: No
  Sender: FDA-Public Use
  Company Number: US-PRINSTON PHARMACEUTICAL INC.-2019PRN00174

PATIENT
  Age: 68 Year
  Sex: Female
  Weight: 158.73 kg

DRUGS (2)
  1. IRBESARTAN AND HYDROCHLOROTHIAZIDE [Suspect]
     Active Substance: HYDROCHLOROTHIAZIDE\IRBESARTAN
     Indication: HYPERTENSION
     Dosage: 1 TABLETS, 1X/DAY IN THE MORNING
     Route: 048
     Dates: start: 201811
  2. CENTRUM VITAMIN [Concomitant]

REACTIONS (6)
  - Product substitution issue [Unknown]
  - Rash [Not Recovered/Not Resolved]
  - Papule [Not Recovered/Not Resolved]
  - Erythema [Not Recovered/Not Resolved]
  - Pruritus [Not Recovered/Not Resolved]
  - Urticaria [Not Recovered/Not Resolved]

NARRATIVE: CASE EVENT DATE: 201811
